FAERS Safety Report 14615383 (Version 1)
Quarter: 2018Q1

REPORT INFORMATION
  Report Type: Report from Study
  Country: US (occurrence: US)
  Receive Date: 20180308
  Receipt Date: 20180308
  Transmission Date: 20180509
  Serious: Yes (Hospitalization, Other)
  Sender: FDA-Public Use
  Company Number: US-CORCEPT THERAPEUTICS INC.-US-2018CRT000011

PATIENT

DRUGS (3)
  1. KORLYM [Suspect]
     Active Substance: MIFEPRISTONE
     Dosage: 300 MG, QD
     Route: 048
     Dates: start: 20180124, end: 20180220
  2. KORLYM [Suspect]
     Active Substance: MIFEPRISTONE
     Indication: CUSHING^S SYNDROME
     Dosage: 300 MG, QD
     Dates: start: 20171215, end: 20171228
  3. KORLYM [Suspect]
     Active Substance: MIFEPRISTONE
     Dosage: 600 MG, QD
     Dates: start: 20171229, end: 20180109

REACTIONS (8)
  - Asthenia [Recovering/Resolving]
  - Joint swelling [Not Recovered/Not Resolved]
  - Thrombosis [Unknown]
  - Swelling [Unknown]
  - Pain [Unknown]
  - Mobility decreased [Unknown]
  - Arthralgia [Unknown]
  - Fall [Recovered/Resolved]

NARRATIVE: CASE EVENT DATE: 20171215
